FAERS Safety Report 10538899 (Version 1)
Quarter: 2014Q4

REPORT INFORMATION
  Report Type: Spontaneous
  Country: US (occurrence: US)
  Receive Date: 20141023
  Receipt Date: 20141023
  Transmission Date: 20150529
  Serious: Yes (Hospitalization)
  Sender: FDA-Public Use
  Company Number: US-B.I. PHARMACEUTICALS,INC./RIDGEFIELD-2014-BI-50204BP

PATIENT
  Age: 68 Year
  Sex: Female
  Weight: 77.11 kg

DRUGS (10)
  1. CELLCEPT [Concomitant]
     Active Substance: MYCOPHENOLATE MOFETIL\MYCOPHENOLATE MOFETIL HYDROCHLORIDE
     Indication: PROPHYLAXIS AGAINST TRANSPLANT REJECTION
     Dosage: 1000 MG
     Route: 048
     Dates: start: 201207
  2. PROGRAF [Concomitant]
     Active Substance: TACROLIMUS\TACROLIMUS ANHYDROUS
     Indication: PROPHYLAXIS AGAINST TRANSPLANT REJECTION
     Dosage: 2 MG
     Route: 048
     Dates: start: 2012
  3. PREDNISONE. [Concomitant]
     Active Substance: PREDNISONE
     Indication: PROPHYLAXIS AGAINST TRANSPLANT REJECTION
     Dosage: 5 MG
     Route: 048
     Dates: start: 201207
  4. MAGNESIUM OXIDE. [Concomitant]
     Active Substance: MAGNESIUM OXIDE
     Indication: MAGNESIUM DEFICIENCY
     Dosage: 800 MG
     Route: 048
     Dates: start: 2013
  5. METOPROLOL [Concomitant]
     Active Substance: METOPROLOL
     Indication: PROPHYLAXIS
     Dosage: 25 MG
     Route: 048
     Dates: start: 2011
  6. NIFEDIPINE ER [Concomitant]
     Active Substance: NIFEDIPINE
     Indication: HYPERTENSION
     Dosage: 60 MG
     Route: 048
     Dates: start: 201207
  7. MICARDIS [Suspect]
     Active Substance: TELMISARTAN
     Indication: HYPERTENSION
     Dosage: 80 MG
     Route: 048
     Dates: start: 200701, end: 201002
  8. VITAMIN D2/ERGOCALCIFEROL [Concomitant]
     Indication: OSTEOPOROSIS
     Dosage: 100000 U
     Route: 048
     Dates: start: 201208
  9. SYNTHROID [Concomitant]
     Active Substance: LEVOTHYROXINE SODIUM
     Indication: BASEDOW^S DISEASE
     Dosage: 100 MCG
     Route: 048
     Dates: start: 1997
  10. RADIOACTIVE IODINE TREATMENT [Concomitant]
     Indication: PRODUCT USED FOR UNKNOWN INDICATION
     Route: 065
     Dates: start: 201309

REACTIONS (2)
  - Foot fracture [Recovered/Resolved with Sequelae]
  - Herpes zoster [Not Recovered/Not Resolved]

NARRATIVE: CASE EVENT DATE: 20140303
